FAERS Safety Report 10279389 (Version 2)
Quarter: 2014Q3

REPORT INFORMATION
  Report Type: Spontaneous
  Country: BE (occurrence: BE)
  Receive Date: 20140707
  Receipt Date: 20140707
  Transmission Date: 20150326
  Serious: Yes (Life-Threatening, Hospitalization, Other)
  Sender: FDA-Public Use
  Company Number: PHHY2014BE075038

PATIENT
  Age: 62 Year
  Sex: Male

DRUGS (7)
  1. ZESTRIL [Concomitant]
     Active Substance: LISINOPRIL
     Dosage: 20 MG 1/J, QD
  2. CORTICOSTEROIDS [Concomitant]
     Active Substance: CORTICOSTEROID NOS
     Dosage: UNK
  3. DUOVENT HFA [Concomitant]
     Indication: CHRONIC OBSTRUCTIVE PULMONARY DISEASE
     Dosage: UNK UKN, PRN
  4. ALPRAZOLAM. [Concomitant]
     Active Substance: ALPRAZOLAM
     Dosage: 0.25 MG, PRN
  5. ONBREZ [Suspect]
     Active Substance: INDACATEROL
     Indication: CHRONIC OBSTRUCTIVE PULMONARY DISEASE
     Dosage: 150 UG, QD IN MORNING
     Route: 055
     Dates: end: 20140512
  6. SPIRIVA [Concomitant]
     Active Substance: TIOTROPIUM BROMIDE MONOHYDRATE
     Indication: CHRONIC OBSTRUCTIVE PULMONARY DISEASE
     Dosage: 18 UKN, QD ONCE DAILY IN THE EVENING
  7. OXYGEN THERAPY [Concomitant]
     Active Substance: OXYGEN
     Dosage: 1.5 L/MIN

REACTIONS (6)
  - Anxiety [Unknown]
  - Middle insomnia [Unknown]
  - Bronchospasm paradoxical [Recovered/Resolved]
  - Dyspnoea [Unknown]
  - Wheezing [Unknown]
  - Apparent death [Unknown]

NARRATIVE: CASE EVENT DATE: 20140331
